FAERS Safety Report 18277724 (Version 1)
Quarter: 2020Q3

REPORT INFORMATION
  Report Type: Spontaneous
  Country: GB (occurrence: GB)
  Receive Date: 20200917
  Receipt Date: 20200917
  Transmission Date: 20201103
  Serious: Yes (Life-Threatening, Hospitalization, Other)
  Sender: FDA-Public Use
  Company Number: NVSC2020GB252403

PATIENT
  Age: 24 Year
  Sex: Female
  Weight: 65.3 kg

DRUGS (5)
  1. DONOR LYMPHOCYTE INFUSION [Suspect]
     Active Substance: LYMPHOCYTES
     Indication: OROPHARYNGEAL SQUAMOUS CELL CARCINOMA
     Dosage: UNK
     Route: 042
  2. PEMBROLIZUMAB. [Suspect]
     Active Substance: PEMBROLIZUMAB
     Indication: OROPHARYNGEAL SQUAMOUS CELL CARCINOMA
     Dosage: UNK
     Route: 042
  3. CYCLOPHOSPHAMIDE. [Suspect]
     Active Substance: CYCLOPHOSPHAMIDE
     Indication: OROPHARYNGEAL SQUAMOUS CELL CARCINOMA
     Dosage: UNK
     Route: 042
  4. PROLEUKIN [Suspect]
     Active Substance: ALDESLEUKIN
     Indication: OROPHARYNGEAL SQUAMOUS CELL CARCINOMA
     Dosage: UNK
     Route: 042
  5. FLUDARABINE [Suspect]
     Active Substance: FLUDARABINE PHOSPHATE
     Indication: OROPHARYNGEAL SQUAMOUS CELL CARCINOMA
     Dosage: UNK
     Route: 042

REACTIONS (2)
  - Haemophagocytic lymphohistiocytosis [Not Recovered/Not Resolved]
  - Cytokine release syndrome [Recovered/Resolved]

NARRATIVE: CASE EVENT DATE: 20190817
